FAERS Safety Report 4512601-0 (Version None)
Quarter: 2004Q4

REPORT INFORMATION
  Report Type: 
  Country: None (occurrence: None)
  Receive Date: 20041124
  Receipt Date: 20041108
  Transmission Date: 20050328
  Serious: Yes (Hospitalization)
  Sender: FDA-Public Use
  Company Number: USA041183512

PATIENT
  Age: 67 Year
  Sex: Female

DRUGS (4)
  1. FORTEO [Suspect]
     Dates: start: 20040501
  2. CELEBREX [Concomitant]
  3. PREDNISONE [Concomitant]
  4. COUMADIN [Concomitant]

REACTIONS (11)
  - COUGH [None]
  - DYSPNOEA [None]
  - HEART RATE INCREASED [None]
  - INFECTION [None]
  - INTERNATIONAL NORMALISED RATIO INCREASED [None]
  - OEDEMA PERIPHERAL [None]
  - PULMONARY CONGESTION [None]
  - PULMONARY FUNCTION TEST ABNORMAL [None]
  - VIRAL INFECTION [None]
  - VOMITING [None]
  - WEIGHT DECREASED [None]
